FAERS Safety Report 7539044-X (Version None)
Quarter: 2011Q2

REPORT INFORMATION
  Report Type: 
  Country: None (occurrence: None)
  Receive Date: 20110610
  Receipt Date: 20110606
  Transmission Date: 20111010
  Serious: Yes (Death)
  Sender: FDA-Public Use
  Company Number: PHHY2011US50029

PATIENT
  Sex: Male

DRUGS (2)
  1. EXJADE [Suspect]
     Indication: MYELODYSPLASTIC SYNDROME
     Dosage: 125 MG DAILY
     Route: 048
     Dates: start: 20110301
  2. LISINOPRIL [Concomitant]
     Dosage: UNK

REACTIONS (1)
  - DEATH [None]
